FAERS Safety Report 5385947-4 (Version None)
Quarter: 2007Q3

REPORT INFORMATION
  Report Type: 
  Country: None (occurrence: None)
  Receive Date: 20070710
  Receipt Date: 20070626
  Transmission Date: 20080115
  Serious: Yes (Death)
  Sender: FDA-Public Use
  Company Number: 2007US001553

PATIENT
  Sex: Male

DRUGS (2)
  1. AMBISOME [Suspect]
     Indication: ASPERGILLOSIS
     Dosage: 100 MG, TOTAL DOSE, IV DRIP
     Route: 041
     Dates: start: 20070608, end: 20070608
  2. FUNGUARD (MICAFUNGIN SODIUM) [Concomitant]

REACTIONS (1)
  - UNDERDOSE [None]
